FAERS Safety Report 20681880 (Version 4)
Quarter: 2022Q2

REPORT INFORMATION
  Report Type: Report from Study
  Country: CH (occurrence: CH)
  Receive Date: 20220407
  Receipt Date: 20220427
  Transmission Date: 20220720
  Serious: Yes (Life-Threatening, Hospitalization, Other)
  Sender: FDA-Public Use
  Company Number: CH-ABBVIE-22K-151-4348609-00

PATIENT
  Sex: Female

DRUGS (3)
  1. CARBIDOPA\LEVODOPA [Suspect]
     Active Substance: CARBIDOPA\LEVODOPA
     Indication: Parkinson^s disease
     Route: 050
     Dates: start: 20220321, end: 20220323
  2. CARBIDOPA\LEVODOPA [Suspect]
     Active Substance: CARBIDOPA\LEVODOPA
     Dosage: MD: 5.5 ML, CRD: 4.1 ML/H, CRN: 0 ML/H, ED: 1.0 ML
     Route: 050
     Dates: start: 20220323, end: 20220422
  3. CARBIDOPA\LEVODOPA [Suspect]
     Active Substance: CARBIDOPA\LEVODOPA
     Dosage: MD: 5.5 ML, CRD: 4.1 ML/H, CRN: 4.1 ML/H, ED: 1.0 ML
     Route: 050
     Dates: start: 20220422

REACTIONS (11)
  - Pulmonary embolism [Recovered/Resolved]
  - Gastrostomy [Unknown]
  - Intestinal obstruction [Recovering/Resolving]
  - Device issue [Recovered/Resolved]
  - Device dislocation [Recovered/Resolved]
  - Somnolence [Not Recovered/Not Resolved]
  - Wound closure [Not Recovered/Not Resolved]
  - Muscle spasms [Recovering/Resolving]
  - Pain [Recovering/Resolving]
  - Asthenia [Not Recovered/Not Resolved]
  - Fatigue [Not Recovered/Not Resolved]

NARRATIVE: CASE EVENT DATE: 20220101
